FAERS Safety Report 5514080-3 (Version None)
Quarter: 2007Q4

REPORT INFORMATION
  Report Type: 
  Country: None (occurrence: None)
  Receive Date: 20071113
  Receipt Date: 20071107
  Transmission Date: 20080405
  Serious: Yes (Other)
  Sender: FDA-Public Use
  Company Number: US-AVENTIS-200717891US

PATIENT
  Sex: Female

DRUGS (1)
  1. LOVENOX [Suspect]
     Route: 051

REACTIONS (2)
  - CONVULSION [None]
  - INJECTION SITE BRUISING [None]
